FAERS Safety Report 10978628 (Version 2)
Quarter: 2015Q3

REPORT INFORMATION
  Report Type: Spontaneous
  Country: BR (occurrence: BR)
  Receive Date: 20150402
  Receipt Date: 20150821
  Transmission Date: 20151125
  Serious: Yes (Hospitalization, Other)
  Sender: FDA-Public Use
  Company Number: BR-ABBVIE-15P-020-1370336-00

PATIENT
  Age: 59 Year
  Sex: Female
  Weight: 91 kg

DRUGS (10)
  1. DEPAKOTE ER [Suspect]
     Active Substance: DIVALPROEX SODIUM
     Indication: BIPOLAR DISORDER
     Dosage: AT THE LUNCH TIME, DAILY DOSE: 500 MG
     Route: 048
  2. ATORVASTATIN [Concomitant]
     Active Substance: ATORVASTATIN
     Indication: PRODUCT USED FOR UNKNOWN INDICATION
  3. CALCIUM VITAMIN D [Concomitant]
     Active Substance: CALCIUM\VITAMIN D
     Indication: PRODUCT USED FOR UNKNOWN INDICATION
  4. RIVOTRIL [Concomitant]
     Active Substance: CLONAZEPAM
     Indication: BIPOLAR DISORDER
     Dosage: AT NIGHT, DAILY DOSE: 0.5 MG
  5. ALENDRONATE SODIUM. [Concomitant]
     Active Substance: ALENDRONATE SODIUM
     Indication: OSTEOPOROSIS PROPHYLAXIS
  6. RISPERIDONE. [Suspect]
     Active Substance: RISPERIDONE
     Dosage: 1 MG; AT NIGHT
     Route: 048
  7. ACETYLSALICYLIC ACID [Concomitant]
     Active Substance: ASPIRIN
     Indication: CARDIOVASCULAR DISORDER
  8. DEPAKOTE [Suspect]
     Active Substance: DIVALPROEX SODIUM
     Indication: BIPOLAR DISORDER
     Route: 065
  9. RISPERIDONE. [Suspect]
     Active Substance: RISPERIDONE
     Indication: DEPRESSION
     Dosage: 3 MG:ONE TABLET IN MORNING, TWO TABLETS AT NIGHT
     Route: 048
     Dates: start: 201403
  10. CARBOLITIUM [Concomitant]
     Active Substance: LITHIUM CARBONATE
     Indication: BIPOLAR DISORDER

REACTIONS (12)
  - Drug prescribing error [Unknown]
  - Pleural effusion [Recovering/Resolving]
  - Thyroid neoplasm [Recovering/Resolving]
  - Spinal disorder [Recovering/Resolving]
  - Osteoarthritis [Recovered/Resolved]
  - Breast cancer [Recovered/Resolved]
  - Pleural effusion [Recovering/Resolving]
  - Delirium [Recovered/Resolved]
  - Hallucination [Recovered/Resolved]
  - Musculoskeletal pain [Recovering/Resolving]
  - Weight increased [Recovered/Resolved]
  - Intervertebral disc protrusion [Recovering/Resolving]

NARRATIVE: CASE EVENT DATE: 201210
